FAERS Safety Report 12024480 (Version 1)
Quarter: 2016Q1

REPORT INFORMATION
  Report Type: Report from Study
  Country: US (occurrence: US)
  Receive Date: 20160206
  Receipt Date: 20160206
  Transmission Date: 20160526
  Serious: No
  Sender: FDA-Public Use
  Company Number: US-ABBVIE-15K-163-1480442-00

PATIENT
  Age: 54 Year
  Sex: Male

DRUGS (1)
  1. HUMIRA [Suspect]
     Active Substance: ADALIMUMAB
     Indication: CROHN^S DISEASE
     Route: 065
     Dates: start: 20120101, end: 20150927

REACTIONS (3)
  - Chills [Recovered/Resolved]
  - Atrial fibrillation [Not Recovered/Not Resolved]
  - Blood creatine increased [Unknown]

NARRATIVE: CASE EVENT DATE: 20150927
